FAERS Safety Report 25107548 (Version 3)
Quarter: 2025Q2

REPORT INFORMATION
  Report Type: Spontaneous
  Country: BR (occurrence: BR)
  Receive Date: 20250321
  Receipt Date: 20250409
  Transmission Date: 20250717
  Serious: Yes (Death)
  Sender: ROCHE
  Company Number: BR-ROCHE-10000238338

PATIENT
  Age: 68 Year
  Sex: Male

DRUGS (1)
  1. TECENTRIQ [Suspect]
     Active Substance: ATEZOLIZUMAB
     Indication: Hepatic cancer
     Route: 065
     Dates: start: 20250205, end: 20250206

REACTIONS (2)
  - Hypovolaemic shock [Fatal]
  - Cardio-respiratory arrest [Fatal]
